FAERS Safety Report 5759105-5 (Version None)
Quarter: 2008Q2

REPORT INFORMATION
  Report Type: 
  Country: None (occurrence: None)
  Receive Date: 20080604
  Receipt Date: 20080529
  Transmission Date: 20081010
  Serious: Yes (Other)
  Sender: FDA-Public Use
  Company Number: IE-ABBOTT-08P-229-0454391-00

PATIENT
  Sex: Female

DRUGS (1)
  1. HUMIRA [Suspect]
     Indication: CROHN'S DISEASE

REACTIONS (3)
  - EYE SWELLING [None]
  - HYPERSENSITIVITY [None]
  - SKIN REACTION [None]
